FAERS Safety Report 6655842-9 (Version None)
Quarter: 2010Q1

REPORT INFORMATION
  Report Type: 
  Country: None (occurrence: None)
  Receive Date: 20100329
  Receipt Date: 20091218
  Transmission Date: 20100710
  Serious: Yes (Hospitalization, Other)
  Sender: FDA-Public Use
  Company Number: US-JNJFOC-20090500143

PATIENT
  Sex: Female
  Weight: 97.07 kg

DRUGS (3)
  1. LEVAQUIN [Suspect]
     Indication: PNEUMONIA
  2. NORVASC [Concomitant]
     Indication: BLOOD PRESSURE
     Route: 065
  3. ENALAPRIL MALEATE [Concomitant]
     Indication: BLOOD PRESSURE
     Route: 065

REACTIONS (4)
  - ABASIA [None]
  - HYPERSENSITIVITY [None]
  - LIP SWELLING [None]
  - OEDEMA PERIPHERAL [None]
